FAERS Safety Report 4725885-0 (Version None)
Quarter: 2005Q3

REPORT INFORMATION
  Report Type: 
  Country: None (occurrence: None)
  Receive Date: 20050722
  Receipt Date: 20050722
  Transmission Date: 20060218
  Serious: Yes (Other)
  Sender: FDA-Public Use
  Company Number: None

PATIENT
  Sex: Female
  Weight: 62.1428 kg

DRUGS (2)
  1. CLORAZEPATE 15 MG ABLE LAB MANUFAC. [Suspect]
     Indication: ANXIETY
     Dosage: 15 MG 3X DAILY INCREASED TO 4X
     Dates: start: 20040701
  2. CLORAZEPATE 15 MG ABLE LAB MANUFAC. [Suspect]
     Indication: ANXIETY
     Dosage: 15 MG 3X DAILY INCREASED TO 4X
     Dates: start: 20050701

REACTIONS (13)
  - ANXIETY [None]
  - CONDITION AGGRAVATED [None]
  - DEPRESSION [None]
  - DERMATITIS [None]
  - DRUG WITHDRAWAL SYNDROME [None]
  - EMOTIONAL DISORDER [None]
  - FIBROMYALGIA [None]
  - GENERAL PHYSICAL HEALTH DETERIORATION [None]
  - MENTAL DISORDER [None]
  - NERVOUS SYSTEM DISORDER [None]
  - REACTION TO PRESERVATIVES [None]
  - STRESS [None]
  - VISUAL DISTURBANCE [None]
